FAERS Safety Report 13339494 (Version 1)
Quarter: 2017Q1

REPORT INFORMATION
  Report Type: Spontaneous
  Country: US (occurrence: US)
  Receive Date: 20170315
  Receipt Date: 20170315
  Transmission Date: 20170428
  Serious: Yes (Other)
  Sender: FDA-Public Use
  Company Number: US-ELI_LILLY_AND_COMPANY-US201703002125

PATIENT
  Sex: Female

DRUGS (2)
  1. TRULICITY [Suspect]
     Active Substance: DULAGLUTIDE
     Indication: TYPE 2 DIABETES MELLITUS
     Dosage: 1.5 MG, UNKNOWN
     Route: 065
     Dates: start: 201601
  2. LAMICTAL [Concomitant]
     Active Substance: LAMOTRIGINE
     Indication: SEIZURE
     Dosage: UNK, UNKNOWN
     Route: 065
     Dates: start: 201701

REACTIONS (3)
  - Blood glucose increased [Unknown]
  - Seizure [Unknown]
  - Injection site pain [Unknown]

NARRATIVE: CASE EVENT DATE: 2016
